FAERS Safety Report 10058459 (Version 3)
Quarter: 2014Q2

REPORT INFORMATION
  Report Type: Spontaneous
  Country: SE (occurrence: SE)
  Receive Date: 20140404
  Receipt Date: 20140514
  Transmission Date: 20141212
  Serious: No
  Sender: FDA-Public Use
  Company Number: SE-BEH-2013039169

PATIENT
  Sex: Female

DRUGS (1)
  1. PRIVIGEN [Suspect]

REACTIONS (3)
  - Blood pressure increased [Recovered/Resolved]
  - Back pain [Recovered/Resolved]
  - Chest pain [Recovered/Resolved]
